APPROVED DRUG PRODUCT: HYDROCORTISONE
Active Ingredient: HYDROCORTISONE
Strength: 1%
Dosage Form/Route: CREAM;TOPICAL
Application: A089273 | Product #001
Applicant: TOPIDERM INC
Approved: Feb 17, 1989 | RLD: No | RS: No | Type: DISCN